FAERS Safety Report 6437905-6 (Version None)
Quarter: 2009Q4

REPORT INFORMATION
  Report Type: 
  Country: None (occurrence: None)
  Receive Date: 20091112
  Receipt Date: 20081013
  Transmission Date: 20100525
  Serious: No
  Sender: FDA-Public Use
  Company Number: US-ASTRAZENECA-2009UW15502

PATIENT
  Age: 66 Year
  Sex: Female

DRUGS (10)
  1. PRILOSEC OTC [Suspect]
     Indication: ULCER HAEMORRHAGE
     Dosage: 1 TABLET, 1 /DAY FOR 21 DAYS
     Route: 048
     Dates: start: 20080922, end: 20081012
  2. HYDROCHLOROTHIAZIDE [Concomitant]
     Dosage: UNKNOWN
  3. SPIRONOLACTONE [Concomitant]
     Dosage: UNKNOWN
  4. ESTROGEN [Concomitant]
     Dosage: UNKNOWN
  5. METOPROLOL [Concomitant]
     Dosage: UNKNOWN
  6. AMITRIPTYLINE [Concomitant]
     Dosage: UNKNOWN
  7. PAROXETINE HCL [Concomitant]
     Dosage: UNKNOWN
  8. GLUCOSAMINE [Concomitant]
     Dosage: UNKNOWN
  9. VITAMINS [Concomitant]
     Dosage: UNKNOWN
  10. LIPITOR [Concomitant]
     Dosage: UNKNOWN

REACTIONS (3)
  - CONDITION AGGRAVATED [None]
  - INCORRECT DRUG ADMINISTRATION DURATION [None]
  - PRURITUS [None]
